FAERS Safety Report 4346485-0 (Version None)
Quarter: 2004Q2

REPORT INFORMATION
  Report Type: 
  Country: None (occurrence: None)
  Receive Date: 20040426
  Receipt Date: 20030724
  Transmission Date: 20050107
  Serious: No
  Sender: FDA-Public Use
  Company Number: US-BRISTOL-MYERS SQUIBB COMPANY-12343919

PATIENT
  Sex: Female

DRUGS (1)
  1. PARAPLATIN POWDER 50 MG [Suspect]

REACTIONS (4)
  - BLOOD PRESSURE INCREASED [None]
  - FLUSHING [None]
  - RASH ERYTHEMATOUS [None]
  - URTICARIA [None]
